FAERS Safety Report 5986400-7 (Version None)
Quarter: 2008Q4

REPORT INFORMATION
  Report Type: 
  Country: None (occurrence: None)
  Receive Date: 20081203
  Receipt Date: 20081126
  Transmission Date: 20090506
  Serious: Yes (Death)
  Sender: FDA-Public Use
  Company Number: 2008097275

PATIENT
  Age: 74 Year
  Sex: Male

DRUGS (2)
  1. FRAGMIN [Suspect]
     Indication: ISCHAEMIC STROKE
     Dosage: 10000 I.U. (5000 I.U., 2 IN 1 D); 5000 I.U. (2500 I.U., 2 IN 1 D)
     Dates: start: 20081020, end: 20081022
  2. FRAGMIN [Suspect]
     Indication: ISCHAEMIC STROKE
     Dosage: 10000 I.U. (5000 I.U., 2 IN 1 D); 5000 I.U. (2500 I.U., 2 IN 1 D)
     Dates: start: 20081023, end: 20081031

REACTIONS (4)
  - BLOOD PRESSURE INCREASED [None]
  - CEREBRAL HAEMORRHAGE [None]
  - HAEMORRHAGIC STROKE [None]
  - LOSS OF CONSCIOUSNESS [None]
